FAERS Safety Report 20579781 (Version 1)
Quarter: 2022Q1

REPORT INFORMATION
  Report Type: Spontaneous
  Country: US (occurrence: US)
  Receive Date: 20220310
  Receipt Date: 20220310
  Transmission Date: 20220423
  Serious: No
  Sender: FDA-Public Use
  Company Number: US-OPTINOSE US, INC.-US-2018OPT000172

PATIENT
  Age: 56 Year
  Sex: Female
  Weight: 64.853 kg

DRUGS (20)
  1. XHANCE [Suspect]
     Active Substance: FLUTICASONE PROPIONATE
     Indication: Upper-airway cough syndrome
     Dosage: 186 MCG, BID (1 SPRAY EACH NOSTRIL BID)
     Route: 045
     Dates: start: 201806, end: 201806
  2. XHANCE [Suspect]
     Active Substance: FLUTICASONE PROPIONATE
     Dosage: 186 MCG, QD (1 SPRAY EACH NOSTRIL QD)
     Route: 045
     Dates: start: 201806, end: 2018
  3. XHANCE [Suspect]
     Active Substance: FLUTICASONE PROPIONATE
     Dosage: 186 MCG, QD (1 SPRAY EACH NOSTRIL QD - DIFFERENT TIME OF DAY)
     Route: 045
     Dates: start: 2018
  4. SPIRIVA [Concomitant]
     Active Substance: TIOTROPIUM BROMIDE MONOHYDRATE
     Indication: Pulmonary congestion
     Dosage: 18 UG, UNK
     Route: 065
     Dates: start: 2017
  5. ARNUITY ELLIPTA [Concomitant]
     Active Substance: FLUTICASONE FUROATE
     Indication: Secretion discharge
     Dosage: UNK
     Dates: start: 2017
  6. ARNUITY ELLIPTA [Concomitant]
     Active Substance: FLUTICASONE FUROATE
     Indication: Ill-defined disorder
  7. XOPENEX [Concomitant]
     Active Substance: LEVALBUTEROL HYDROCHLORIDE
     Indication: Secretion discharge
     Dosage: 4 DF (PUFFS), QD
     Dates: start: 2017
  8. XOPENEX [Concomitant]
     Active Substance: LEVALBUTEROL HYDROCHLORIDE
     Indication: Ill-defined disorder
  9. FLOVENT [Concomitant]
     Active Substance: FLUTICASONE PROPIONATE
     Indication: Secretion discharge
     Dosage: 3 DF (PUFFS), QD
     Dates: start: 2017
  10. FLOVENT [Concomitant]
     Active Substance: FLUTICASONE PROPIONATE
     Indication: Ill-defined disorder
  11. ROBITUSSIN                         /00048001/ [Concomitant]
     Indication: Secretion discharge
     Dosage: 7 DF (CAPFULS), QD
     Route: 048
     Dates: start: 2017
  12. ROBITUSSIN                         /00048001/ [Concomitant]
     Indication: Ill-defined disorder
  13. ALLEGRA [Concomitant]
     Active Substance: FEXOFENADINE HYDROCHLORIDE
     Indication: Secretion discharge
     Dosage: 180 MG, QD (IN AM)
     Route: 048
     Dates: start: 2017
  14. ALLEGRA [Concomitant]
     Active Substance: FEXOFENADINE HYDROCHLORIDE
     Indication: Ill-defined disorder
  15. MONTELUKAST [Concomitant]
     Active Substance: MONTELUKAST SODIUM
     Indication: Gastrooesophageal reflux disease
     Dosage: 10 MG, QD (EVENING)
     Route: 048
     Dates: start: 201804
  16. ESOMEPRAZOLE [Concomitant]
     Active Substance: ESOMEPRAZOLE
     Indication: Gastrooesophageal reflux disease
     Dosage: 40 MG, UNK
     Route: 048
     Dates: start: 201804
  17. FAMOTIDINE [Concomitant]
     Active Substance: FAMOTIDINE
     Indication: Gastrooesophageal reflux disease
     Dosage: 60 MG (THREE 20 MG TABLETS), BID (AT LUNCH AND DINNER)
     Route: 048
  18. GAVISCON                           /00237601/ [Concomitant]
     Indication: Gastrooesophageal reflux disease
     Dosage: 12 DF (CAPS), PRN
     Route: 048
     Dates: start: 201804
  19. MIRALAX [Concomitant]
     Active Substance: POLYETHYLENE GLYCOL 3350
     Indication: Gastrointestinal disorder
     Dosage: ^WHATEVER THE SERVING SIZE IS^
     Dates: start: 2017
  20. DYMISTA [Concomitant]
     Active Substance: AZELASTINE HYDROCHLORIDE\FLUTICASONE PROPIONATE
     Indication: Upper-airway cough syndrome
     Dosage: 137 MCG, QD (AT NIGHT)
     Route: 045
     Dates: start: 2017

REACTIONS (9)
  - Palpitations [Recovering/Resolving]
  - Nausea [Recovering/Resolving]
  - Vomiting [Recovered/Resolved]
  - Diarrhoea [Recovering/Resolving]
  - Drug interaction [Unknown]
  - Headache [Recovering/Resolving]
  - Drug effective for unapproved indication [Unknown]
  - Drug intolerance [Unknown]
  - Incorrect dose administered [Unknown]

NARRATIVE: CASE EVENT DATE: 20180101
